FAERS Safety Report 4530175-5 (Version None)
Quarter: 2004Q4

REPORT INFORMATION
  Report Type: 
  Country: None (occurrence: None)
  Receive Date: 20041215
  Receipt Date: 20041215
  Transmission Date: 20050328
  Serious: Yes (Hospitalization)
  Sender: FDA-Public Use
  Company Number: None

PATIENT
  Age: 70 Year
  Sex: Male
  Weight: 117.9352 kg

DRUGS (14)
  1. SEPTRA DS [Suspect]
     Indication: HAEMOPHILUS INFECTION
     Dosage: 800/160MG  TWICE DAILY ORAL
     Route: 048
     Dates: start: 20041129, end: 20041208
  2. LOPRESSOR [Concomitant]
  3. LASIX [Concomitant]
  4. MAGNESIUM OXIDE [Concomitant]
  5. GLUCOTROL [Concomitant]
  6. PRAVACHOL [Concomitant]
  7. CO-ENZYME Q [Concomitant]
  8. ASPIRIN [Concomitant]
  9. ALDACTONE [Concomitant]
  10. LANTUS [Concomitant]
  11. DIOVAN [Concomitant]
  12. FLOVENT [Concomitant]
  13. OXYGEN [Concomitant]
  14. ATROVENT [Concomitant]

REACTIONS (2)
  - ELECTROCARDIOGRAM CHANGE [None]
  - HYPERKALAEMIA [None]
